FAERS Safety Report 14619798 (Version 1)
Quarter: 2018Q1

REPORT INFORMATION
  Report Type: Spontaneous
  Country: US (occurrence: US)
  Receive Date: 20180309
  Receipt Date: 20180309
  Transmission Date: 20180509
  Serious: Yes (Other)
  Sender: FDA-Public Use
  Company Number: None

PATIENT
  Age: 14 Year
  Sex: Female
  Weight: 46.35 kg

DRUGS (1)
  1. SUCRALFATE. [Suspect]
     Active Substance: SUCRALFATE
     Indication: GASTROOESOPHAGEAL REFLUX DISEASE
     Dosage: ?          QUANTITY:56 TABLET(S);?
     Route: 048
     Dates: start: 20180305, end: 20180306

REACTIONS (10)
  - Throat tightness [None]
  - Nausea [None]
  - Swelling [None]
  - Dysphemia [None]
  - Pruritus [None]
  - Speech disorder [None]
  - Pallor [None]
  - Hypersensitivity [None]
  - Abnormal behaviour [None]
  - Swelling face [None]

NARRATIVE: CASE EVENT DATE: 20180306
